FAERS Safety Report 4946680-3 (Version None)
Quarter: 2006Q1

REPORT INFORMATION
  Report Type: 
  Country: None (occurrence: None)
  Receive Date: 20060317
  Receipt Date: 20050419
  Transmission Date: 20060701
  Serious: Yes (Hospitalization, Disabling, Other)
  Sender: FDA-Public Use
  Company Number: US-MERCK-0504USA03764

PATIENT
  Age: 53 Year
  Sex: Female
  Weight: 95 kg

DRUGS (1)
  1. VIOXX [Suspect]
     Indication: ARTHRITIS
     Route: 048
     Dates: start: 20010309, end: 20040830

REACTIONS (10)
  - CEREBROVASCULAR ACCIDENT [None]
  - CHEST PAIN [None]
  - EXTRASYSTOLES [None]
  - HEADACHE [None]
  - HEART RATE INCREASED [None]
  - HYPERTENSION [None]
  - MYOCARDIAL INFARCTION [None]
  - NEOPLASM [None]
  - PALPITATIONS [None]
  - RENAL FAILURE CHRONIC [None]
